FAERS Safety Report 11054545 (Version 1)
Quarter: 2015Q2

REPORT INFORMATION
  Report Type: Spontaneous
  Country: US (occurrence: None)
  Receive Date: 20150421
  Receipt Date: 20150421
  Transmission Date: 20150821
  Serious: Yes (Life-Threatening)
  Sender: FDA-Public Use
  Company Number: None

PATIENT
  Age: 80 Year
  Sex: Female
  Weight: 74.84 kg

DRUGS (11)
  1. ZETIA [Suspect]
     Active Substance: EZETIMIBE
     Indication: BLOOD CHOLESTEROL INCREASED
     Dosage: MOUTH
     Dates: start: 20150211, end: 20150226
  2. POTASSIUM [Concomitant]
     Active Substance: POTASSIUM
  3. ASPIRIN. [Concomitant]
     Active Substance: ASPIRIN
  4. NEXIUM [Concomitant]
     Active Substance: ESOMEPRAZOLE MAGNESIUM
  5. ISOSORBIDE [Concomitant]
     Active Substance: ISOSORBIDE
  6. METOPROLOL [Concomitant]
     Active Substance: METOPROLOL
  7. PREDNISONE. [Concomitant]
     Active Substance: PREDNISONE
  8. SPIRIVA [Concomitant]
     Active Substance: TIOTROPIUM BROMIDE MONOHYDRATE
  9. ALBUTEROL. [Concomitant]
     Active Substance: ALBUTEROL
  10. ALBUTEROL. [Concomitant]
     Active Substance: ALBUTEROL
  11. ACTONEL [Concomitant]
     Active Substance: RISEDRONATE SODIUM

REACTIONS (2)
  - Abnormal dreams [None]
  - Abnormal behaviour [None]

NARRATIVE: CASE EVENT DATE: 20150226
